FAERS Safety Report 15226940 (Version 1)
Quarter: 2018Q3

REPORT INFORMATION
  Report Type: Spontaneous
  Country: US (occurrence: US)
  Receive Date: 20180706
  Receipt Date: 20180706
  Transmission Date: 20181010
  Serious: Yes (Life-Threatening, Hospitalization)
  Sender: FDA-Public Use
  Company Number: None

PATIENT
  Age: 68 Year
  Sex: Male
  Weight: 88.04 kg

DRUGS (2)
  1. LISINOPRIL. [Suspect]
     Active Substance: LISINOPRIL
     Route: 048
     Dates: start: 19990106, end: 20180207
  2. LEVOFLOXACIN. [Suspect]
     Active Substance: LEVOFLOXACIN
     Indication: PNEUMONIA
     Route: 048
     Dates: start: 20171017, end: 20171019

REACTIONS (6)
  - Endotracheal intubation complication [None]
  - Pharyngeal oedema [None]
  - Swollen tongue [None]
  - Tracheostomy [None]
  - Angioedema [None]
  - Respiratory distress [None]

NARRATIVE: CASE EVENT DATE: 20171019
